FAERS Safety Report 6369609-2 (Version None)
Quarter: 2009Q3

REPORT INFORMATION
  Report Type: 
  Country: None (occurrence: None)
  Receive Date: 20090923
  Receipt Date: 20090921
  Transmission Date: 20100115
  Serious: Yes (Life-Threatening, Disabling)
  Sender: FDA-Public Use
  Company Number: GB-TEVA-209820ISR

PATIENT
  Age: 71 Year
  Sex: Male
  Weight: 83.5 kg

DRUGS (1)
  1. SIMVASTATIN [Suspect]
     Indication: BLOOD CHOLESTEROL INCREASED
     Route: 048
     Dates: start: 20070101, end: 20090101

REACTIONS (1)
  - INTERSTITIAL LUNG DISEASE [None]
